FAERS Safety Report 5375728-X (Version None)
Quarter: 2007Q2

REPORT INFORMATION
  Report Type: 
  Country: None (occurrence: None)
  Receive Date: 20070628
  Receipt Date: 20070621
  Transmission Date: 20071010
  Serious: Yes (Hospitalization)
  Sender: FDA-Public Use
  Company Number: 2007BI011314

PATIENT
  Age: 53 Year
  Sex: Female
  Weight: 77.1115 kg

DRUGS (4)
  1. AVONEX [Suspect]
     Indication: MULTIPLE SCLEROSIS
     Dosage: 30 UG; QW; IM
     Route: 030
     Dates: start: 20031213
  2. ARICEPT [Concomitant]
  3. ADVIL LIQUI-GELS [Concomitant]
  4. LIPITOR [Concomitant]

REACTIONS (9)
  - ANGINA PECTORIS [None]
  - ATRIOVENTRICULAR BLOCK COMPLETE [None]
  - CONDITION AGGRAVATED [None]
  - CORONARY ARTERY DISEASE [None]
  - HEART RATE DECREASED [None]
  - LOSS OF CONSCIOUSNESS [None]
  - MITRAL VALVE INCOMPETENCE [None]
  - MULTIPLE SCLEROSIS [None]
  - PERICARDIAL EFFUSION [None]
